FAERS Safety Report 21460367 (Version 7)
Quarter: 2023Q1

REPORT INFORMATION
  Report Type: Spontaneous
  Country: CA (occurrence: CA)
  Receive Date: 20221014
  Receipt Date: 20230325
  Transmission Date: 20230417
  Serious: Yes (Other)
  Sender: FDA-Public Use
  Company Number: CA-CELLTRION INC.-2022CA016535

PATIENT

DRUGS (6)
  1. INFLECTRA [Suspect]
     Active Substance: INFLIXIMAB-DYYB
     Indication: Colitis ulcerative
     Dosage: 5 MG/KG, W0, W2, W6, THEN EVERY 8 WEEKS
     Route: 042
     Dates: start: 20220822, end: 20230124
  2. INFLECTRA [Suspect]
     Active Substance: INFLIXIMAB-DYYB
     Dosage: 5 MG/KG, W0, W2, W6, THEN EVERY 8 WEEKS
     Route: 042
     Dates: start: 20220907
  3. INFLECTRA [Suspect]
     Active Substance: INFLIXIMAB-DYYB
     Dosage: 5 MG/KG, W0, W2, W6, THEN EVERY 8 WEEKS
     Route: 042
     Dates: start: 20221004
  4. INFLECTRA [Suspect]
     Active Substance: INFLIXIMAB-DYYB
     Dosage: 5 MG/KG, W0, W2, W6, THEN EVERY 8 WEEKS
     Route: 042
     Dates: start: 20221129
  5. INFLECTRA [Suspect]
     Active Substance: INFLIXIMAB-DYYB
     Dosage: 400 MG Q 8 WEEKS
     Route: 042
     Dates: start: 20230124
  6. PREDNISONE [Concomitant]
     Active Substance: PREDNISONE
     Dosage: 1 DF, DOSAGE INFORMATION NOT PROVIDED

REACTIONS (9)
  - Hypersensitivity [Unknown]
  - Weight increased [Not Recovered/Not Resolved]
  - Pruritus [Recovering/Resolving]
  - Urticaria [Recovered/Resolved]
  - Flushing [Recovering/Resolving]
  - Rash macular [Recovering/Resolving]
  - Malaise [Recovering/Resolving]
  - Condition aggravated [Not Recovered/Not Resolved]
  - Polyp [Not Recovered/Not Resolved]

NARRATIVE: CASE EVENT DATE: 20220101
